FAERS Safety Report 18768385 (Version 1)
Quarter: 2021Q1

REPORT INFORMATION
  Report Type: Report from Study
  Country: CN (occurrence: CN)
  Receive Date: 20210121
  Receipt Date: 20210121
  Transmission Date: 20210419
  Serious: Yes (Hospitalization)
  Sender: FDA-Public Use
  Company Number: CN-ASTRAZENECA-2020SF71144

PATIENT
  Age: 18187 Day
  Sex: Female

DRUGS (62)
  1. CARBOPLATIN. [Suspect]
     Active Substance: CARBOPLATIN
     Indication: CERVIX CARCINOMA
     Route: 042
     Dates: start: 20201020, end: 20201020
  2. PARACETAMOL AND TRAMADOL HYDROCHLORIDE TABLETS [Concomitant]
     Indication: PAIN
     Route: 048
     Dates: start: 20201010, end: 20201018
  3. FAT EMULSION, AMINO ACIDS(17) AND GLUCOSE(11%) INJECTION [Concomitant]
     Indication: NUTRITIONAL SUPPLEMENTATION
     Dosage: DF UNKNOWN
     Dates: start: 202010
  4. PALONOSETRON HYDROCHLORIDE INJECTION [Concomitant]
     Active Substance: PALONOSETRON HYDROCHLORIDE
     Indication: PROPHYLAXIS
     Dosage: MG ONCE/SINGLE ADMINISTRATION
     Route: 042
     Dates: start: 20201027, end: 20201027
  5. CIMETIDINE INJECTION [Concomitant]
     Indication: GASTROINTESTINAL DISORDER
     Dosage: 0.4G ONCE/SINGLE ADMINISTRATION
     Route: 042
     Dates: start: 20201020, end: 20201020
  6. LANSOPRAZOLE FOR INJECTION [Concomitant]
     Indication: GASTROINTESTINAL DISORDER
     Dosage: 30.0MG ONCE/SINGLE ADMINISTRATION
     Route: 042
     Dates: start: 20201103, end: 20201103
  7. RECOMBINANT INTERLEUKIN?11  INJECTION [Concomitant]
     Indication: PLATELET COUNT DECREASED
     Dosage: 1.5MG ONCE/SINGLE ADMINISTRATION
     Route: 058
     Dates: start: 20201112, end: 20201112
  8. ORAL STRONG BONES AND BLOOD [Concomitant]
     Indication: ANAEMIA
     Route: 048
     Dates: start: 20201110, end: 20201114
  9. CARBOPLATIN. [Suspect]
     Active Substance: CARBOPLATIN
     Indication: CERVIX CARCINOMA
     Route: 042
     Dates: start: 20201027, end: 20201027
  10. PARACETAMOL AND TRAMADOL HYDROCHLORIDE TABLETS [Concomitant]
     Indication: ANALGESIC THERAPY
     Route: 048
     Dates: start: 20201010, end: 20201018
  11. FUROSEMIDE INJECTION [Concomitant]
     Active Substance: FUROSEMIDE
     Indication: POLYURIA
     Dosage: DF UNKNOWN
     Dates: start: 202010
  12. PALONOSETRON HYDROCHLORIDE INJECTION [Concomitant]
     Active Substance: PALONOSETRON HYDROCHLORIDE
     Indication: PROPHYLAXIS
     Dosage: MG ONCE/SINGLE ADMINISTRATION
     Route: 042
     Dates: start: 20201103, end: 20201103
  13. CIMETIDINE INJECTION [Concomitant]
     Indication: GASTROINTESTINAL DISORDER
     Dosage: 0.4G ONCE/SINGLE ADMINISTRATION
     Route: 042
     Dates: start: 20201027, end: 20201027
  14. ONDANSETRON HYDROCHLORIDE TABLETS [Concomitant]
     Active Substance: ONDANSETRON HYDROCHLORIDE
     Indication: PROPHYLAXIS
     Route: 048
     Dates: start: 20201019, end: 20201026
  15. ONDANSETRON HYDROCHLORIDE TABLETS [Concomitant]
     Active Substance: ONDANSETRON HYDROCHLORIDE
     Indication: NAUSEA
     Route: 048
     Dates: start: 20201027, end: 20201114
  16. PARAFFINUMLIQUIDU MLEVE [Concomitant]
     Indication: CONSTIPATION
     Dosage: 20.0ML ONCE/SINGLE ADMINISTRATION
     Route: 048
     Dates: start: 20201030, end: 20201030
  17. RECOMBINANT HUMAN GRANULOCYTE COLONY STIMULATING FACTOR INJECTION [Concomitant]
     Indication: WHITE BLOOD CELL COUNT DECREASED
     Dosage: 300.0UG/INHAL ONCE/SINGLE ADMINISTRATION
     Route: 058
     Dates: start: 20201114, end: 20201114
  18. RECOMBINANT HUMAN GRANULOCYTE COLONY STIMULATING FACTOR INJECTION [Concomitant]
     Indication: WHITE BLOOD CELL COUNT DECREASED
     Dosage: 300.0UG/INHAL ONCE/SINGLE ADMINISTRATION
     Route: 058
     Dates: start: 20201114, end: 20201114
  19. RECOMBINANT INTERLEUKIN?11  INJECTION [Concomitant]
     Indication: PLATELET COUNT DECREASED
     Dosage: 1.5MG ONCE/SINGLE ADMINISTRATION
     Route: 058
     Dates: start: 20201113, end: 20201113
  20. LEUKOCYTIC SUSPENSION OF RED BLOOD CELLS (O TYPE, RH +) [Concomitant]
     Indication: ANAEMIA
     Dosage: 4.0DF ONCE/SINGLE ADMINISTRATION
     Route: 042
     Dates: start: 20201113, end: 20201113
  21. DURVALUMAB. [Suspect]
     Active Substance: DURVALUMAB
     Indication: CERVIX CARCINOMA
     Route: 042
     Dates: start: 20201203, end: 20201203
  22. BRACHYTHERAPY [Suspect]
     Active Substance: RADIATION THERAPY
     Indication: CERVIX CARCINOMA
     Route: 065
  23. PARACETAMOL AND TRAMADOL HYDROCHLORIDE TABLETS [Concomitant]
     Indication: ANALGESIC THERAPY
     Route: 048
     Dates: start: 20200924, end: 20201004
  24. COMPOUND VITAMIN 3 INJECTION [Concomitant]
     Indication: NUTRITIONAL SUPPLEMENTATION
     Dosage: 2.0DF ONCE/SINGLE ADMINISTRATION
     Route: 042
     Dates: start: 20201027, end: 20201027
  25. LANSOPRAZOLE FOR INJECTION [Concomitant]
     Indication: GASTROINTESTINAL DISORDER
     Dosage: 30.0MG ONCE/SINGLE ADMINISTRATION
     Route: 042
     Dates: start: 20201020, end: 20201020
  26. IRBESARTAN AND HYDROCHLOROTHIAZIDE TABLETS [Concomitant]
     Indication: HYPERTENSION
     Route: 048
     Dates: start: 20201024, end: 20201114
  27. CARBOPLATIN. [Suspect]
     Active Substance: CARBOPLATIN
     Indication: CERVIX CARCINOMA
     Route: 042
     Dates: start: 20201103, end: 20201103
  28. PARACETAMOL AND TRAMADOL HYDROCHLORIDE TABLETS [Concomitant]
     Indication: PAIN
     Route: 048
     Dates: start: 20200924, end: 20201004
  29. SODIUM BICARBONATE INJECTION [Concomitant]
     Active Substance: SODIUM BICARBONATE
     Indication: ALKALOSIS
     Dosage: DF UNKNOWN
     Dates: start: 202010
  30. COMPOUND GLUTAMINE ENTERSOLUBLE CAPSULES [Concomitant]
     Indication: COMPLICATIONS OF INTESTINAL TRANSPLANT
     Route: 048
     Dates: start: 20201019, end: 20201114
  31. PANTOPRAZOLE SODIUM ENTERIC?COATED TABLETS [Concomitant]
     Indication: GASTROINTESTINAL DISORDER
     Route: 048
     Dates: start: 20201019, end: 20201114
  32. OXYCODONE AND ACETAMINOPHEN [Concomitant]
     Active Substance: ACETAMINOPHEN\OXYCODONE HYDROCHLORIDE
     Indication: PAIN
     Route: 048
     Dates: start: 20201019, end: 20201028
  33. POTASSIUM CHLORIDE INJECTION [Concomitant]
     Active Substance: POTASSIUM CHLORIDE
     Indication: BLOOD POTASSIUM
     Dosage: DF UNKNOWN
     Dates: start: 202010
  34. CIMETIDINE INJECTION [Concomitant]
     Indication: GASTROINTESTINAL DISORDER
     Dosage: 0.4G ONCE/SINGLE ADMINISTRATION
     Route: 042
     Dates: start: 20201103, end: 20201103
  35. RECOMBINANT HUMAN GRANULOCYTE COLONY STIMULATING FACTOR INJECTION [Concomitant]
     Indication: WHITE BLOOD CELL COUNT DECREASED
     Dosage: 300.0UG/INHAL ONCE/SINGLE ADMINISTRATION
     Route: 058
     Dates: start: 20201109, end: 20201109
  36. RECOMBINANT HUMAN GRANULOCYTE COLONY STIMULATING FACTOR INJECTION [Concomitant]
     Indication: WHITE BLOOD CELL COUNT DECREASED
     Dosage: 300.0UG/INHAL ONCE/SINGLE ADMINISTRATION
     Route: 058
     Dates: start: 20201112, end: 20201112
  37. LEUCOGEN TABLETS [Concomitant]
     Indication: PLATELET COUNT DECREASED
     Route: 048
     Dates: start: 20201110
  38. PROMETHAZINE HYDROCHLORIDE INJECTION [Concomitant]
     Indication: ADVERSE REACTION
     Dosage: 25.0MG ONCE/SINGLE ADMINISTRATION
     Route: 031
     Dates: start: 20201113, end: 20201113
  39. RECOMBINANT HUMANTHROMBOPOIETI N INJECTION [Concomitant]
     Indication: PLATELET COUNT DECREASED
     Route: 058
     Dates: start: 20201114, end: 20201122
  40. STUDY PROCEDURE [Suspect]
     Active Substance: INVESTIGATIONAL PRODUCT
     Indication: CERVIX CARCINOMA
     Dosage: THESUBJECT RECEIVED THEFIFTH INTRACAVITARYRETRACTION, THE TREATMENTPROCESS WASSUCCESSFUL.AFTER, T...
     Route: 065
     Dates: start: 20201217
  41. ROPIVACAINEHYDRO CHLORIDE INJECTION [Concomitant]
     Indication: LOCAL ANAESTHESIA
     Dosage: DF ONCE/SINGLE ADMINISTRATION
     Dates: start: 20201005, end: 20201005
  42. CEFTAZIDIME FOR INJECTION [Concomitant]
     Indication: INFECTION
     Dosage: DF UNKNOWN
     Dates: start: 202010
  43. OMEPRAZOLE SODIUM FOR INJECTION [Concomitant]
     Indication: GASTROINTESTINAL DISORDER
     Dosage: DF UNKNOWN
     Dates: start: 202010
  44. CELECOXIB. [Concomitant]
     Active Substance: CELECOXIB
     Indication: PAIN
     Route: 048
     Dates: start: 20201007, end: 20201009
  45. PALONOSETRON HYDROCHLORIDE INJECTION [Concomitant]
     Active Substance: PALONOSETRON HYDROCHLORIDE
     Indication: PROPHYLAXIS
     Dosage: MG ONCE/SINGLE ADMINISTRATION
     Route: 042
     Dates: start: 20201020, end: 20201020
  46. COMPOUND VITAMIN 3 INJECTION [Concomitant]
     Indication: NUTRITIONAL SUPPLEMENTATION
     Dosage: 2.0DF ONCE/SINGLE ADMINISTRATION
     Route: 042
     Dates: start: 20201103, end: 20201103
  47. ONDANSETRON HYDROCHLORIDE TABLETS [Concomitant]
     Active Substance: ONDANSETRON HYDROCHLORIDE
     Indication: NAUSEA
     Route: 048
     Dates: start: 20201019, end: 20201026
  48. ONDANSETRON HYDROCHLORIDE TABLETS [Concomitant]
     Active Substance: ONDANSETRON HYDROCHLORIDE
     Indication: PROPHYLAXIS
     Route: 048
     Dates: start: 20201027, end: 20201114
  49. DURVALUMAB. [Suspect]
     Active Substance: DURVALUMAB
     Indication: CERVIX CARCINOMA
     Route: 042
     Dates: start: 20201019, end: 20201019
  50. EBRT [Suspect]
     Active Substance: RADIATION THERAPY
     Indication: CERVIX CARCINOMA
     Route: 065
  51. LIDOCAINE HYDROCHLORIDE INJECTION [Concomitant]
     Active Substance: LIDOCAINE HYDROCHLORIDE
     Indication: LOCAL ANAESTHESIA
     Dosage: DF ONCE/SINGLE ADMINISTRATION
     Dates: start: 20201005, end: 20201005
  52. TRAMADOL HYDROCHLORIDE INJECTION [Concomitant]
     Indication: BACK PAIN
     Dosage: DF ONCE/SINGLE ADMINISTRATION
     Dates: start: 202010, end: 20201005
  53. COMBINED BIFIDOBACTERIUM ,LACTOBACILLUS,ENTEROC OCCUS AND BACILLUS [Concomitant]
     Indication: CONSTIPATION
     Route: 048
     Dates: start: 20201019, end: 20201114
  54. NIFEDIPINE TABLETS [Concomitant]
     Indication: HYPERTENSION
     Route: 048
     Dates: start: 20201024, end: 20201114
  55. FU FANG ZAO FAN WAN TCM [Concomitant]
     Indication: PLATELET COUNT DECREASED
     Route: 048
     Dates: start: 20201110
  56. SHENG BAI HE JI(TCM) [Concomitant]
     Indication: WHITE BLOOD CELL COUNT DECREASED
     Route: 048
     Dates: start: 20201117, end: 20201123
  57. DURVALUMAB. [Suspect]
     Active Substance: DURVALUMAB
     Indication: CERVIX CARCINOMA
     Route: 042
     Dates: start: 20201229, end: 20201229
  58. COMPOUND VITAMIN 3 INJECTION [Concomitant]
     Indication: NUTRITIONAL SUPPLEMENTATION
     Dosage: 2.0DF ONCE/SINGLE ADMINISTRATION
     Route: 042
     Dates: start: 20201020, end: 20201020
  59. LANSOPRAZOLE FOR INJECTION [Concomitant]
     Indication: GASTROINTESTINAL DISORDER
     Dosage: 30.0MG ONCE/SINGLE ADMINISTRATION
     Route: 042
     Dates: start: 20201027, end: 20201027
  60. RECOMBINANT HUMAN GRANULOCYTE COLONY STIMULATING FACTOR INJECTION [Concomitant]
     Indication: WHITE BLOOD CELL COUNT DECREASED
     Dosage: 300.0UG/INHAL ONCE/SINGLE ADMINISTRATION
     Route: 058
     Dates: start: 20201109, end: 20201109
  61. RECOMBINANT HUMAN GRANULOCYTE COLONY STIMULATING FACTOR INJECTION [Concomitant]
     Indication: WHITE BLOOD CELL COUNT DECREASED
     Dosage: 300.0UG/INHAL ONCE/SINGLE ADMINISTRATION
     Route: 058
     Dates: start: 20201112, end: 20201112
  62. PREDNISONE ACETATE TABLETS [Concomitant]
     Indication: PLATELET COUNT DECREASED
     Route: 048
     Dates: start: 20201113

REACTIONS (1)
  - Haematuria [Not Recovered/Not Resolved]

NARRATIVE: CASE EVENT DATE: 20201217
